FAERS Safety Report 23531680 (Version 3)
Quarter: 2024Q2

REPORT INFORMATION
  Report Type: Spontaneous
  Country: CA (occurrence: CA)
  Receive Date: 20240216
  Receipt Date: 20240412
  Transmission Date: 20240716
  Serious: Yes (Other)
  Sender: FDA-Public Use
  Company Number: CA-PFIZER INC-202300036094

PATIENT
  Age: 57 Year
  Sex: Male

DRUGS (2)
  1. ABRILADA [Suspect]
     Active Substance: ADALIMUMAB-AFZB
     Indication: Rheumatoid arthritis
     Dosage: 40 MG, EVERY 2 WEEK
     Route: 058
  2. ABRILADA [Suspect]
     Active Substance: ADALIMUMAB-AFZB
     Dosage: 40 MG EVERY 2 WEEK
     Route: 058
     Dates: start: 20230228, end: 2024

REACTIONS (17)
  - Haematochezia [Unknown]
  - Drug ineffective [Unknown]
  - Back pain [Recovering/Resolving]
  - Greater trochanteric pain syndrome [Unknown]
  - Tenderness [Unknown]
  - Glomerular filtration rate increased [Unknown]
  - Red blood cell sedimentation rate increased [Unknown]
  - Alanine aminotransferase decreased [Unknown]
  - Blood creatinine decreased [Unknown]
  - C-reactive protein decreased [Unknown]
  - Haemoglobin decreased [Unknown]
  - Lymphocyte count decreased [Unknown]
  - Neutrophil count decreased [Unknown]
  - Platelet count decreased [Unknown]
  - White blood cell count decreased [Unknown]
  - Myalgia [Unknown]
  - Arthralgia [Unknown]

NARRATIVE: CASE EVENT DATE: 20230101
